FAERS Safety Report 5383232-8 (Version None)
Quarter: 2007Q3

REPORT INFORMATION
  Report Type: 
  Country: None (occurrence: None)
  Receive Date: 20070710
  Receipt Date: 20070628
  Transmission Date: 20080115
  Serious: Yes (Hospitalization, Disabling, Other)
  Sender: FDA-Public Use
  Company Number: JP-ELI_LILLY_AND_COMPANY-JP200705007603

PATIENT
  Age: 61 Year
  Sex: Male
  Weight: 49 kg

DRUGS (8)
  1. GEMZAR [Suspect]
     Indication: LUNG CARCINOMA CELL TYPE UNSPECIFIED STAGE IV
     Dosage: 1200 MG, OTHER
     Route: 042
     Dates: start: 20070420, end: 20070427
  2. GEMZAR [Suspect]
     Dosage: 900 MG, OTHER
     Route: 042
     Dates: start: 20070518
  3. GEMZAR [Suspect]
     Dosage: 1500 MG, OTHER
     Route: 042
     Dates: start: 20070323, end: 20070330
  4. CISPLATIN [Concomitant]
     Indication: LUNG CARCINOMA CELL TYPE UNSPECIFIED STAGE IV
     Dosage: 100 MG, OTHER
     Route: 042
     Dates: start: 20070323, end: 20070323
  5. CISPLATIN [Concomitant]
     Dosage: 90 MG, OTHER
     Route: 042
     Dates: start: 20070420, end: 20070420
  6. CISPLATIN [Concomitant]
     Dosage: 70 MG, OTHER
     Route: 039
     Dates: start: 20070518, end: 20070518
  7. ZOFRAN [Concomitant]
     Indication: PROPHYLAXIS
     Dosage: 4 MG, DAILY (1/D)
     Dates: start: 20070323, end: 20070525
  8. DEXART [Concomitant]
     Indication: PROPHYLAXIS
     Dosage: 10 MG, DAILY (1/D)
     Route: 042
     Dates: start: 20070323, end: 20070525

REACTIONS (11)
  - ALTERED STATE OF CONSCIOUSNESS [None]
  - BLOOD PRESSURE DECREASED [None]
  - BONE MARROW FAILURE [None]
  - C-REACTIVE PROTEIN INCREASED [None]
  - CHEST X-RAY ABNORMAL [None]
  - FEBRILE NEUTROPENIA [None]
  - HAEMOGLOBIN DECREASED [None]
  - METASTASES TO CENTRAL NERVOUS SYSTEM [None]
  - PLATELET COUNT DECREASED [None]
  - PYREXIA [None]
  - WHITE BLOOD CELL COUNT DECREASED [None]
